FAERS Safety Report 19658984 (Version 2)
Quarter: 2023Q1

REPORT INFORMATION
  Report Type: Spontaneous
  Country: KR (occurrence: KR)
  Receive Date: 20210804
  Receipt Date: 20230317
  Transmission Date: 20230417
  Serious: Yes (Death, Other)
  Sender: FDA-Public Use
  Company Number: KR-SA-2021SA256526

PATIENT
  Age: 14 Year
  Sex: Male

DRUGS (4)
  1. GEMCITABINE HYDROCHLORIDE [Suspect]
     Active Substance: GEMCITABINE HYDROCHLORIDE
     Indication: Osteosarcoma recurrent
     Dosage: 675 OR 900 MG/M2 OVER 90 MIN ON DAY 1 AND DAY 8
     Route: 042
  2. GEMCITABINE HYDROCHLORIDE [Suspect]
     Active Substance: GEMCITABINE HYDROCHLORIDE
     Indication: Bone lesion
  3. DOCETAXEL [Suspect]
     Active Substance: DOCETAXEL
     Indication: Osteosarcoma recurrent
     Dosage: 100 MG/M2 (ON DAY 8) OVER 90?MINUTES ON DAY 8
     Route: 042
  4. DOCETAXEL [Suspect]
     Active Substance: DOCETAXEL
     Indication: Bone lesion

REACTIONS (6)
  - Respiratory failure [Fatal]
  - Pneumonia [Fatal]
  - Pleural effusion [Fatal]
  - Anaemia [Fatal]
  - Disease progression [Fatal]
  - Toxicity to various agents [Fatal]
